FAERS Safety Report 19485078 (Version 1)
Quarter: 2021Q3

REPORT INFORMATION
  Report Type: Other
  Country: CA (occurrence: CA)
  Receive Date: 20210702
  Receipt Date: 20210702
  Transmission Date: 20211014
  Serious: Yes (Death, Hospitalization, Other)
  Sender: FDA-Public Use
  Company Number: CA-CELLTRION INC.-2021CA008696

PATIENT

DRUGS (17)
  1. ACEBUTOLOL [Concomitant]
     Active Substance: ACEBUTOLOL
  2. BENADRYL [Concomitant]
     Active Substance: DIPHENHYDRAMINE HYDROCHLORIDE
     Indication: PREMEDICATION
     Dosage: 50 MILLIGRAM
     Route: 048
  3. SALBUTAMOL [Concomitant]
     Active Substance: ALBUTEROL
  4. RITUXIMAB (UNKNOWN) [Suspect]
     Active Substance: RITUXIMAB
     Indication: INTERSTITIAL LUNG DISEASE
     Dosage: 1000 MILLIGRAM
     Route: 041
  5. RITUXIMAB (UNKNOWN) [Suspect]
     Active Substance: RITUXIMAB
     Indication: ANTISYNTHETASE SYNDROME
  6. DECADRON [Concomitant]
     Active Substance: DEXAMETHASONE
  7. ESOMEPRAZOLE. [Concomitant]
     Active Substance: ESOMEPRAZOLE MAGNESIUM
  8. PHOSPHATE [Concomitant]
     Active Substance: UNSPECIFIED INGREDIENT
  9. MAGNESIUM [Concomitant]
     Active Substance: MAGNESIUM
  10. METHYLPREDNISOLONE SODIUM SUCCINATE. [Concomitant]
     Active Substance: METHYLPREDNISOLONE SODIUM SUCCINATE
     Indication: PREMEDICATION
     Dosage: 100 MILLIGRAM
     Route: 042
  11. TAMSULOSIN [Concomitant]
     Active Substance: TAMSULOSIN
  12. CALCIUM [Concomitant]
     Active Substance: CALCIUM
  13. FOLIC ACID. [Concomitant]
     Active Substance: FOLIC ACID
  14. PREDNISONE. [Concomitant]
     Active Substance: PREDNISONE
  15. ALENDRONATE SODIUM. [Concomitant]
     Active Substance: ALENDRONATE SODIUM
  16. TELMISARTAN. [Concomitant]
     Active Substance: TELMISARTAN
  17. TYLENOL [Concomitant]
     Active Substance: ACETAMINOPHEN
     Indication: PREMEDICATION
     Dosage: 650 MILLIGRAM
     Route: 048

REACTIONS (7)
  - Cardiac failure [Fatal]
  - Atrial fibrillation [Fatal]
  - Fluid overload [Fatal]
  - Pneumonia [Fatal]
  - Malaise [Fatal]
  - Off label use [Unknown]
  - Cardiac disorder [Fatal]
